FAERS Safety Report 5495470-4 (Version None)
Quarter: 2007Q4

REPORT INFORMATION
  Report Type: 
  Country: None (occurrence: None)
  Receive Date: 20071023
  Receipt Date: 20071011
  Transmission Date: 20080405
  Serious: Yes (Life-Threatening, Hospitalization)
  Sender: FDA-Public Use
  Company Number: US021430

PATIENT
  Age: 59 Year
  Sex: Male
  Weight: 76.9 kg

DRUGS (1)
  1. TRISENOX [Suspect]
     Indication: MULTIPLE MYELOMA
     Dosage: 0.25 MG/KG, INTRAVENOUS
     Route: 042
     Dates: start: 20070707, end: 20070713

REACTIONS (7)
  - BLOOD CULTURE POSITIVE [None]
  - FLUID OVERLOAD [None]
  - PNEUMONIA [None]
  - PULMONARY OEDEMA [None]
  - SEPTIC SHOCK [None]
  - STEM CELL TRANSPLANT [None]
  - SUPRAVENTRICULAR TACHYCARDIA [None]
